FAERS Safety Report 14280981 (Version 3)
Quarter: 2018Q1

REPORT INFORMATION
  Report Type: Spontaneous
  Country: US (occurrence: US)
  Receive Date: 20171213
  Receipt Date: 20180306
  Transmission Date: 20180508
  Serious: No
  Sender: FDA-Public Use
  Company Number: US-GLAXOSMITHKLINE-US2017191197

PATIENT
  Sex: Female

DRUGS (3)
  1. VENTOLIN HFA [Suspect]
     Active Substance: ALBUTEROL SULFATE
     Indication: PULMONARY CONGESTION
     Dosage: 1 PUFF(S), UNK
     Route: 055
     Dates: start: 20171207
  2. TESSALON [Concomitant]
     Active Substance: BENZONATATE
  3. NYSTATIN. [Concomitant]
     Active Substance: NYSTATIN

REACTIONS (3)
  - Product quality issue [Unknown]
  - Extra dose administered [Unknown]
  - Wrong technique in product usage process [Unknown]
